FAERS Safety Report 19868062 (Version 4)
Quarter: 2021Q4

REPORT INFORMATION
  Report Type: Other
  Country: CA (occurrence: None)
  Receive Date: 20210922
  Receipt Date: 20211221
  Transmission Date: 20220303
  Serious: Yes (Hospitalization)
  Sender: FDA-Public Use
  Company Number: CA-ROCHE-2910794

PATIENT
  Age: 59 Year
  Sex: Female

DRUGS (12)
  1. ACTEMRA [Suspect]
     Active Substance: TOCILIZUMAB
     Indication: Rheumatoid arthritis
     Route: 058
     Dates: start: 20210907, end: 2021
  2. ASPIRIN [Concomitant]
     Active Substance: ASPIRIN
  3. ATIVAN [Concomitant]
     Active Substance: LORAZEPAM
     Indication: Product used for unknown indication
  4. AZATHIOPRINE [Concomitant]
     Active Substance: AZATHIOPRINE
     Indication: Product used for unknown indication
  5. DIAZEPAM [Concomitant]
     Active Substance: DIAZEPAM
  6. MIRTAZAPINE [Concomitant]
     Active Substance: MIRTAZAPINE
  7. OXYCODONE HYDROCHLORIDE [Concomitant]
     Active Substance: OXYCODONE HYDROCHLORIDE
     Indication: Pain
  8. PERCOCET [Concomitant]
     Active Substance: ACETAMINOPHEN\OXYCODONE HYDROCHLORIDE
  9. PREDNISONE [Concomitant]
     Active Substance: PREDNISONE
  10. TYLENOL [Concomitant]
     Active Substance: ACETAMINOPHEN
  11. VALIUM [Concomitant]
     Active Substance: DIAZEPAM
  12. CANNABIDIOL [Concomitant]
     Active Substance: CANNABIDIOL

REACTIONS (12)
  - Fall [Unknown]
  - Head injury [Unknown]
  - Somnambulism [Unknown]
  - Ill-defined disorder [Unknown]
  - Muscular weakness [Unknown]
  - Ill-defined disorder [Unknown]
  - Oropharyngeal pain [Unknown]
  - Joint swelling [Unknown]
  - Headache [Unknown]
  - Vomiting [Unknown]
  - Oral mucosal blistering [Unknown]
  - Pharyngeal swelling [Unknown]

NARRATIVE: CASE EVENT DATE: 20210907
